FAERS Safety Report 5041025-5 (Version None)
Quarter: 2006Q2

REPORT INFORMATION
  Report Type: 
  Country: None (occurrence: None)
  Receive Date: 20060629
  Receipt Date: 20060629
  Transmission Date: 20061013
  Serious: Yes (Hospitalization)
  Sender: FDA-Public Use
  Company Number: None

PATIENT
  Age: 52 Year
  Sex: Male
  Weight: 81.6475 kg

DRUGS (5)
  1. OXANDRIN [Suspect]
     Indication: CHEMOTHERAPY
     Dosage: 2 TABLETS (10 MG EACH BID ORAL
     Route: 048
     Dates: start: 20060601, end: 20060608
  2. OXANDRIN [Suspect]
     Indication: WEIGHT DECREASED
     Dosage: 2 TABLETS (10 MG EACH BID ORAL
     Route: 048
     Dates: start: 20060601, end: 20060608
  3. MS CONTIN [Concomitant]
  4. DULCOLAX [Concomitant]
  5. SENOKOT [Concomitant]

REACTIONS (1)
  - DYSPNOEA [None]
